FAERS Safety Report 7792096-4 (Version None)
Quarter: 2011Q3

REPORT INFORMATION
  Report Type: 
  Country: None (occurrence: None)
  Receive Date: 20110930
  Receipt Date: 20110930
  Transmission Date: 20111222
  Serious: Yes (Other)
  Sender: FDA-Public Use
  Company Number: None

PATIENT
  Sex: Male
  Weight: 81.6475 kg

DRUGS (2)
  1. OXISTAT [Suspect]
     Indication: PRURITUS
     Dosage: 1% APPLY AFFECTED AREA 2X DAY - 2 WKS APPLY EXTERNALLY
     Route: 061
     Dates: start: 20110728, end: 20110806
  2. OXISTAT [Suspect]
     Indication: HEAT RASH
     Dosage: 1% APPLY AFFECTED AREA 2X DAY - 2 WKS APPLY EXTERNALLY
     Route: 061
     Dates: start: 20110728, end: 20110806

REACTIONS (3)
  - APPLICATION SITE PAIN [None]
  - APPLICATION SITE RASH [None]
  - APPLICATION SITE ERYTHEMA [None]
